FAERS Safety Report 7812556-7 (Version None)
Quarter: 2011Q4

REPORT INFORMATION
  Report Type: 
  Country: None (occurrence: None)
  Receive Date: 20111011
  Receipt Date: 20110913
  Transmission Date: 20120403
  Serious: Yes (Hospitalization, Other)
  Sender: FDA-Public Use
  Company Number: 1713747-2011-00024

PATIENT
  Sex: Male
  Weight: 78 kg

DRUGS (3)
  1. DELFLEX-LM W/ DEXTROSE 2.5% [Suspect]
     Indication: RENAL FAILURE CHRONIC
     Dosage: 2033
     Dates: start: 20110531
  2. DELFLEX W/ DEXTROSE 1.5% [Suspect]
     Indication: RENAL FAILURE CHRONIC
     Dosage: 033
     Dates: start: 20110531
  3. . [Concomitant]

REACTIONS (5)
  - ASTHENIA [None]
  - INFECTIOUS PERITONITIS [None]
  - BLOOD ALBUMIN DECREASED [None]
  - PRODUCT SUBSTITUTION ISSUE [None]
  - FLUID OVERLOAD [None]
